FAERS Safety Report 5704109-1 (Version None)
Quarter: 2008Q2

REPORT INFORMATION
  Report Type: 
  Country: None (occurrence: None)
  Receive Date: 20080414
  Receipt Date: 20080404
  Transmission Date: 20081010
  Serious: Yes (Death)
  Sender: FDA-Public Use
  Company Number: FR-PURDUE-GBR_2008_0003884

PATIENT
  Age: 73 Year
  Sex: Male

DRUGS (12)
  1. OXYCONTIN [Suspect]
     Indication: PAIN
     Dosage: 40 MG, DAILY
     Route: 048
     Dates: start: 20071110, end: 20071111
  2. OXYNORM CAPSULES 10 MG [Suspect]
     Indication: PAIN
     Dosage: 40 MG, PRN
     Route: 048
     Dates: start: 20071110, end: 20071111
  3. TERCIAN [Suspect]
     Indication: PSYCHIATRIC DECOMPENSATION
     Dosage: 50 MG, DAILY
     Route: 030
     Dates: start: 20071112, end: 20071112
  4. GALANTAMINE HYDROBROMIDE [Suspect]
     Indication: MEMORY IMPAIRMENT
     Dosage: 16 MG, DAILY
     Route: 048
     Dates: end: 20071111
  5. ATHYMIL [Suspect]
     Indication: DEPRESSION
     Dosage: 30 MG, DAILY
     Route: 048
     Dates: end: 20071111
  6. MEPRONIZINE [Suspect]
     Indication: INSOMNIA
     Dosage: 1 DF, DAILY
     Route: 048
  7. ATACAND [Suspect]
     Indication: HYPERTENSION
     Dosage: 4 MG, DAILY
     Route: 048
     Dates: end: 20071111
  8. ATENOLOL [Suspect]
     Indication: HYPERTENSION
     Dosage: 100 MG, DAILY
     Route: 048
     Dates: end: 20071111
  9. PRAXILENE [Suspect]
     Indication: COGNITIVE DISORDER
     Dosage: 200 MG, DAILY
     Route: 048
     Dates: end: 20071111
  10. PREVISCAN [Suspect]
     Indication: ATRIAL FIBRILLATION
     Dosage: 20 MG, DAILY
     Route: 048
     Dates: end: 20071111
  11. FORLAX [Suspect]
     Indication: CONSTIPATION
     Dosage: 20 GRAM, DAILY
     Route: 048
     Dates: start: 20071110, end: 20071111
  12. INIPOMP [Suspect]
     Indication: PROPHYLAXIS
     Dosage: 20 MG, DAILY
     Route: 048
     Dates: start: 20071108, end: 20071111

REACTIONS (6)
  - CYANOSIS [None]
  - DEATH [None]
  - DYSPNOEA [None]
  - EYE ROLLING [None]
  - LOSS OF CONSCIOUSNESS [None]
  - URINARY INCONTINENCE [None]
